FAERS Safety Report 8958887 (Version 1)
Quarter: 2012Q4

REPORT INFORMATION
  Report Type: 
  Country: JP (occurrence: JP)
  Receive Date: 20121212
  Receipt Date: 20121212
  Transmission Date: 20130627
  Serious: Yes (Hospitalization, Other)
  Sender: FDA-Public Use
  Company Number: JP-ROCHE-1138341

PATIENT
  Age: 76 Year
  Sex: Male
  Weight: 60 kg

DRUGS (9)
  1. AVASTIN [Suspect]
     Indication: RECTAL CANCER METASTATIC
     Route: 041
     Dates: start: 20100413, end: 20100427
  2. CALCIUM LEVOFOLINATE [Suspect]
     Indication: RECTAL CANCER METASTATIC
     Route: 041
     Dates: start: 20100413, end: 20100427
  3. ELPLAT [Suspect]
     Indication: RECTAL CANCER METASTATIC
     Route: 041
     Dates: start: 20100413, end: 20100427
  4. 5-FU [Suspect]
     Indication: RECTAL CANCER METASTATIC
     Route: 040
     Dates: start: 20100413, end: 20100427
  5. 5-FU [Suspect]
     Indication: RECTAL CANCER METASTATIC
     Route: 041
     Dates: start: 20100413, end: 20100429
  6. MAGNESIUM OXIDE [Concomitant]
     Indication: CONSTIPATION PROPHYLAXIS
     Route: 048
     Dates: start: 20100415, end: 20100429
  7. KYTRIL [Concomitant]
     Indication: PROPHYLAXIS OF NAUSEA AND VOMITING
     Dosage: Dosage is uncertain.
     Route: 042
     Dates: start: 20100413, end: 20100413
  8. KYTRIL [Concomitant]
     Indication: PROPHYLAXIS OF NAUSEA AND VOMITING
     Dosage: Dosage is uncertain.
     Route: 042
     Dates: start: 20100427, end: 20100427
  9. SOSEGON [Concomitant]
     Route: 030
     Dates: start: 20100415, end: 20100415

REACTIONS (5)
  - Enterovesical fistula [Recovering/Resolving]
  - Necrotising fasciitis [Recovering/Resolving]
  - Drug-induced liver injury [Recovered/Resolved]
  - Device related infection [Recovered/Resolved]
  - Urinary tract infection [Recovered/Resolved]
